FAERS Safety Report 12229242 (Version 4)
Quarter: 2016Q4

REPORT INFORMATION
  Report Type: Spontaneous
  Country: US (occurrence: US)
  Receive Date: 20160401
  Receipt Date: 20161021
  Transmission Date: 20170207
  Serious: Yes (Death, Hospitalization)
  Sender: FDA-Public Use
  Company Number: US-JNJFOC-20160302670

PATIENT
  Age: 74 Year
  Sex: Male

DRUGS (1)
  1. XARELTO [Suspect]
     Active Substance: RIVAROXABAN
     Indication: ANTICOAGULANT THERAPY
     Dosage: VARYING DOSES OF 10-20 MG
     Route: 048
     Dates: start: 201509, end: 201510

REACTIONS (5)
  - Anastomotic ulcer haemorrhage [Unknown]
  - Shock haemorrhagic [Unknown]
  - Gastrointestinal haemorrhage [Unknown]
  - Coagulopathy [Unknown]
  - Death [Fatal]

NARRATIVE: CASE EVENT DATE: 20151002
